FAERS Safety Report 4263647-1 (Version None)
Quarter: 2004Q1

REPORT INFORMATION
  Report Type: 
  Country: None (occurrence: None)
  Receive Date: 20040102
  Receipt Date: 20031212
  Transmission Date: 20041129
  Serious: Yes (Hospitalization, Other)
  Sender: FDA-Public Use
  Company Number: USA031254685

PATIENT
  Age: 52 Year
  Sex: Female
  Weight: 100 kg

DRUGS (7)
  1. HUMULIN 70/30 [Suspect]
     Indication: DIABETES MELLITUS NON-INSULIN-DEPENDENT
     Dates: end: 20030701
  2. HUMULIN R [Suspect]
     Indication: DIABETES MELLITUS NON-INSULIN-DEPENDENT
     Dates: end: 20030701
  3. ACTOS [Concomitant]
  4. LANTUS [Concomitant]
  5. GLUCOPHAGE [Concomitant]
  6. HUMULIN N [Suspect]
     Indication: DIABETES MELLITUS NON-INSULIN-DEPENDENT
     Dates: end: 20030101
  7. HUMALOG [Suspect]
     Indication: DIABETES MELLITUS NON-INSULIN-DEPENDENT
     Dosage: 30 U/4 DAY
     Dates: start: 20030701

REACTIONS (12)
  - BLOOD GLUCOSE INCREASED [None]
  - CEREBROVASCULAR ACCIDENT [None]
  - CORONARY ARTERY DISEASE [None]
  - HYPERTENSION [None]
  - IRRITABILITY [None]
  - LACUNAR INFARCTION [None]
  - MICROANGIOPATHY [None]
  - MYOCARDIAL INFARCTION [None]
  - PREMENSTRUAL SYNDROME [None]
  - SYNCOPE [None]
  - VENTRICULAR TACHYCARDIA [None]
  - WEIGHT INCREASED [None]
